FAERS Safety Report 21333016 (Version 1)
Quarter: 2022Q3

REPORT INFORMATION
  Report Type: Spontaneous
  Country: US (occurrence: None)
  Receive Date: 20220913
  Receipt Date: 20220913
  Transmission Date: 20221027
  Serious: No
  Sender: FDA-Public Use
  Company Number: None

PATIENT
  Sex: Female

DRUGS (2)
  1. POLYURETHANE [Suspect]
     Active Substance: POLYURETHANE
     Indication: Pulmonary arterial hypertension
     Dosage: OTHER STRENGTH : 6CM 7 7CM;?OTHER QUANTITY : 35.8 MG/KG/MIN;?FREQUENCY : EVERY MINUTE;?
     Route: 058
     Dates: start: 20211122
  2. REMODULIN [Suspect]
     Active Substance: TREPROSTINIL

REACTIONS (4)
  - Hypersensitivity [None]
  - Injection site erythema [None]
  - Injection site swelling [None]
  - Injection site reaction [None]
